FAERS Safety Report 23383555 (Version 2)
Quarter: 2024Q1

REPORT INFORMATION
  Report Type: Spontaneous
  Country: US (occurrence: US)
  Receive Date: 20240109
  Receipt Date: 20240328
  Transmission Date: 20240410
  Serious: No
  Sender: FDA-Public Use
  Company Number: US-SA-SAC20240102001088

PATIENT
  Age: 11 Year
  Sex: Female

DRUGS (1)
  1. DUPIXENT [Suspect]
     Active Substance: DUPILUMAB
     Indication: Dermatitis atopic
     Dosage: 200 MG, QOW
     Route: 058

REACTIONS (9)
  - Sleep disorder due to a general medical condition [Unknown]
  - Eczema eyelids [Unknown]
  - Condition aggravated [Unknown]
  - Swelling of eyelid [Unknown]
  - Eye pruritus [Unknown]
  - Eyelids pruritus [Unknown]
  - Dermatitis atopic [Unknown]
  - Product dose omission issue [Unknown]
  - Dry eye [Unknown]
